FAERS Safety Report 8769366 (Version 1)
Quarter: 2012Q4

REPORT INFORMATION
  Report Type: 
  Country: US (occurrence: US)
  Receive Date: 20120830
  Receipt Date: 20120830
  Transmission Date: 20130627
  Serious: Yes (Death, Hospitalization, Other)
  Sender: FDA-Public Use
  Company Number: US-ELI_LILLY_AND_COMPANY-US201208008616

PATIENT
  Sex: Female

DRUGS (5)
  1. FORTEO [Suspect]
     Indication: OSTEOPOROSIS
     Dosage: 20 ug, qd
     Dates: start: 201001
  2. PRAVASTATIN [Concomitant]
  3. BABY ASPIRIN [Concomitant]
     Dosage: UNK
  4. POTASSIUM [Concomitant]
     Dosage: UNK
  5. LASIX [Concomitant]
     Dosage: UNK

REACTIONS (9)
  - Cardiomyopathy [Fatal]
  - Cerebrovascular accident [Fatal]
  - Cardiac failure congestive [Not Recovered/Not Resolved]
  - Dyspnoea [Unknown]
  - Ileus [Unknown]
  - Chronic obstructive pulmonary disease [Not Recovered/Not Resolved]
  - Cardiac function test abnormal [Unknown]
  - Oxygen saturation decreased [Unknown]
  - Pneumonia [Unknown]
